FAERS Safety Report 5546884-5 (Version None)
Quarter: 2007Q4

REPORT INFORMATION
  Report Type: 
  Country: None (occurrence: None)
  Receive Date: 20071211
  Receipt Date: 20071129
  Transmission Date: 20080405
  Serious: Yes (Life-Threatening, Other)
  Sender: FDA-Public Use
  Company Number: JP-PFIZER INC-2007068266

PATIENT
  Sex: Female
  Weight: 52 kg

DRUGS (5)
  1. CAMPTO [Suspect]
     Indication: CERVIX CARCINOMA
     Route: 042
     Dates: start: 20070718, end: 20070718
  2. CAMPTO [Suspect]
     Dosage: DAILY DOSE:60MG/M2-FREQ:ON DAYS 1 AND 8
     Dates: start: 20070725, end: 20070725
  3. NEDAPLATIN [Suspect]
     Indication: CERVIX CARCINOMA
     Route: 042
     Dates: start: 20070718, end: 20070718
  4. KYTRIL [Concomitant]
     Route: 042
     Dates: start: 20070718, end: 20070725
  5. DECADRON [Concomitant]
     Route: 042
     Dates: start: 20070718, end: 20070718

REACTIONS (8)
  - COLITIS [None]
  - DIARRHOEA [None]
  - DISSEMINATED INTRAVASCULAR COAGULATION [None]
  - FEBRILE NEUTROPENIA [None]
  - HAEMOGLOBIN DECREASED [None]
  - LEUKOPENIA [None]
  - NEUTROPENIA [None]
  - THROMBOCYTOPENIA [None]
